FAERS Safety Report 15989353 (Version 1)
Quarter: 2019Q1

REPORT INFORMATION
  Report Type: Spontaneous
  Country: US (occurrence: US)
  Receive Date: 20190221
  Receipt Date: 20190221
  Transmission Date: 20190418
  Serious: No
  Sender: FDA-Public Use
  Company Number: US-PFIZER INC-2019074375

PATIENT
  Age: 25 Year
  Sex: Male
  Weight: 118.82 kg

DRUGS (1)
  1. GABAPENTIN. [Suspect]
     Active Substance: GABAPENTIN
     Dosage: UNK

REACTIONS (3)
  - Weight increased [Unknown]
  - Drug ineffective [Unknown]
  - Drug hypersensitivity [Unknown]
